FAERS Safety Report 11099809 (Version 1)
Quarter: 2015Q2

REPORT INFORMATION
  Report Type: Spontaneous
  Country: US (occurrence: US)
  Receive Date: 20150508
  Receipt Date: 20150508
  Transmission Date: 20150821
  Serious: Yes (Hospitalization, Other)
  Sender: FDA-Public Use
  Company Number: US-AMGEN-US373377

PATIENT
  Age: 12 Year
  Sex: Female
  Weight: 33.9 kg

DRUGS (3)
  1. ENBREL [Suspect]
     Active Substance: ETANERCEPT
     Indication: JUVENILE IDIOPATHIC ARTHRITIS
     Dosage: 30 MG, QWK
     Route: 058
     Dates: start: 2002
  2. IBUPROFEN. [Concomitant]
     Active Substance: IBUPROFEN
     Dosage: UNK UNK, AS NECESSARY
  3. NAPROSYN [Concomitant]
     Active Substance: NAPROXEN
     Dosage: UNK UNK, PRN

REACTIONS (2)
  - Pancreatitis [Recovered/Resolved]
  - Colitis ulcerative [Unknown]

NARRATIVE: CASE EVENT DATE: 20091005
